FAERS Safety Report 6972351-8 (Version None)
Quarter: 2010Q3

REPORT INFORMATION
  Report Type: 
  Country: None (occurrence: None)
  Receive Date: 20100909
  Receipt Date: 20100901
  Transmission Date: 20110219
  Serious: Yes (Hospitalization)
  Sender: FDA-Public Use
  Company Number: CH-JNJFOC-20100900062

PATIENT
  Age: 51 Year
  Sex: Male

DRUGS (3)
  1. INTELENCE [Suspect]
     Indication: HIV INFECTION
     Route: 048
  2. ISENTRESS [Suspect]
     Indication: HIV INFECTION
     Route: 065
  3. KALETRA [Suspect]
     Indication: HIV INFECTION
     Route: 065

REACTIONS (2)
  - APHASIA [None]
  - DYSARTHRIA [None]
